FAERS Safety Report 10255899 (Version 1)
Quarter: 2014Q2

REPORT INFORMATION
  Report Type: Spontaneous
  Country: US (occurrence: US)
  Receive Date: 20140624
  Receipt Date: 20140624
  Transmission Date: 20141212
  Serious: Yes (Disabling)
  Sender: FDA-Public Use
  Company Number: US-GLAXOSMITHKLINE-A1068075A

PATIENT
  Age: 78 Year
  Sex: Female

DRUGS (9)
  1. ZOFRAN [Suspect]
     Indication: PROPHYLAXIS OF NAUSEA AND VOMITING
     Route: 042
     Dates: start: 20140320, end: 20140320
  2. UNSPECIFIED MEDICATION [Concomitant]
  3. LIDOCAINE [Concomitant]
  4. PROPOFOL [Concomitant]
  5. FENTANYL [Concomitant]
  6. ANESTHESIA [Concomitant]
  7. TRIBENZOR [Concomitant]
  8. SYNTHROID [Concomitant]
  9. SPIRONOLACTONE [Concomitant]

REACTIONS (3)
  - Blindness [Not Recovered/Not Resolved]
  - Amaurosis fugax [Not Recovered/Not Resolved]
  - Retinal artery occlusion [Not Recovered/Not Resolved]
